FAERS Safety Report 4783673-3 (Version None)
Quarter: 2005Q3

REPORT INFORMATION
  Report Type: 
  Country: None (occurrence: None)
  Receive Date: 20050927
  Receipt Date: 20050630
  Transmission Date: 20060218
  Serious: No
  Sender: FDA-Public Use
  Company Number: USA050596976

PATIENT
  Age: 9 Year
  Sex: Female
  Weight: 53 kg

DRUGS (4)
  1. STRATTERA [Suspect]
     Dosage: 60 MG
  2. CLONIDINE [Concomitant]
  3. IMIPRAMINE [Concomitant]
  4. ADDERALL 10 [Concomitant]

REACTIONS (2)
  - ATRIOVENTRICULAR BLOCK FIRST DEGREE [None]
  - TACHYCARDIA [None]
